FAERS Safety Report 5608682-3 (Version None)
Quarter: 2008Q1

REPORT INFORMATION
  Report Type: 
  Country: None (occurrence: None)
  Receive Date: 20080131
  Receipt Date: 20080118
  Transmission Date: 20080703
  Serious: Yes (Other)
  Sender: FDA-Public Use
  Company Number: JP-PFIZER INC-2008008420

PATIENT
  Age: 66 Year
  Sex: Male

DRUGS (6)
  1. HALCION [Suspect]
     Dosage: DAILY DOSE:.25MG
     Route: 048
  2. ALESION [Concomitant]
     Route: 048
  3. THEO-DUR [Concomitant]
     Route: 048
  4. ONON [Concomitant]
     Route: 048
  5. ATELEC [Concomitant]
     Route: 048
  6. MAGNESIUM OXIDE [Concomitant]
     Route: 048

REACTIONS (1)
  - HYPOGLYCAEMIA [None]
